FAERS Safety Report 5714097-X (Version None)
Quarter: 2008Q2

REPORT INFORMATION
  Report Type: 
  Country: None (occurrence: None)
  Receive Date: 20080421
  Receipt Date: 20080404
  Transmission Date: 20081010
  Serious: Yes (Hospitalization)
  Sender: FDA-Public Use
  Company Number: 200813318GDDC

PATIENT
  Age: 82 Year
  Sex: Female

DRUGS (3)
  1. GLYBURIDE [Suspect]
     Indication: TYPE 2 DIABETES MELLITUS
     Dosage: 5 MG BID PO
     Route: 048
     Dates: end: 20080228
  2. METFORMIN HCL [Suspect]
     Indication: TYPE 2 DIABETES MELLITUS
     Dosage: QD PO
     Route: 048
     Dates: end: 20080228
  3. SINTROM [Concomitant]

REACTIONS (7)
  - CONFUSIONAL STATE [None]
  - DIARRHOEA [None]
  - DRUG ADMINISTRATION ERROR [None]
  - GASTRITIS [None]
  - HYPOGLYCAEMIA [None]
  - ORAL INTAKE REDUCED [None]
  - SOMNOLENCE [None]
